FAERS Safety Report 24205955 (Version 2)
Quarter: 2024Q3

REPORT INFORMATION
  Report Type: Spontaneous
  Country: US (occurrence: None)
  Receive Date: 20240813
  Receipt Date: 20240918
  Transmission Date: 20241016
  Serious: Yes (Hospitalization, Other)
  Sender: ASTRAZENECA
  Company Number: 2024A177748

PATIENT
  Age: 1024 Month
  Sex: Male

DRUGS (1)
  1. BREZTRI [Suspect]
     Active Substance: BUDESONIDE\FORMOTEROL\GLYCOPYRROLATE
     Indication: Chronic obstructive pulmonary disease
     Route: 055
     Dates: start: 202106

REACTIONS (8)
  - Chronic obstructive pulmonary disease [Unknown]
  - Infection susceptibility increased [Unknown]
  - Emphysema [Unknown]
  - Pneumonia [Unknown]
  - Dyspnoea [Unknown]
  - Influenza [Unknown]
  - Drug dose omission by device [Unknown]
  - Device delivery system issue [Unknown]

NARRATIVE: CASE EVENT DATE: 20230601
